FAERS Safety Report 9520285 (Version 1)
Quarter: 2013Q3

REPORT INFORMATION
  Report Type: Other
  Country: IT (occurrence: IT)
  Receive Date: 20130912
  Receipt Date: 20130912
  Transmission Date: 20140515
  Serious: Yes (Hospitalization)
  Sender: FDA-Public Use
  Company Number: IT-NOVEN-13IT007645

PATIENT
  Age: 57 Year
  Sex: Female

DRUGS (4)
  1. PAROXETINE [Suspect]
     Indication: DEPRESSION
     Dosage: 10 DROPS, DAILY (1MG/DROP)
     Route: 048
     Dates: start: 20110101, end: 20130619
  2. TEGRETOL [Suspect]
     Indication: EPILEPSY
     Dosage: 800 MG, QD
     Route: 048
     Dates: start: 20101201, end: 20130619
  3. LAMOTRIGINA [Concomitant]
     Indication: PRODUCT USED FOR UNKNOWN INDICATION
     Dosage: UNK
     Dates: start: 20110201, end: 20130619
  4. RAMIPRIL [Concomitant]
     Indication: PRODUCT USED FOR UNKNOWN INDICATION
     Dosage: UNK
     Dates: start: 20080101, end: 20130619

REACTIONS (2)
  - Drug interaction [Unknown]
  - Hyponatraemia [Unknown]
